FAERS Safety Report 9950164 (Version 1)
Quarter: 2014Q1

REPORT INFORMATION
  Report Type: Spontaneous
  Country: US (occurrence: US)
  Receive Date: 20140304
  Receipt Date: 20140304
  Transmission Date: 20141002
  Serious: No
  Sender: FDA-Public Use
  Company Number: US-ABBVIE-13P-163-1069680-00

PATIENT
  Age: 46 Year
  Sex: Male
  Weight: 88.53 kg

DRUGS (2)
  1. HUMIRA [Suspect]
     Indication: PSORIASIS
     Route: 058
     Dates: start: 201112, end: 201112
  2. HUMIRA [Suspect]
     Dates: start: 201112, end: 201202

REACTIONS (2)
  - Drug eruption [Recovered/Resolved]
  - Granuloma annulare [Recovered/Resolved]
